FAERS Safety Report 11441845 (Version 1)
Quarter: 2015Q3

REPORT INFORMATION
  Report Type: Spontaneous
  Country: GB (occurrence: GB)
  Receive Date: 20150901
  Receipt Date: 20150901
  Transmission Date: 20151125
  Serious: Yes (Other)
  Sender: FDA-Public Use
  Company Number: GB-PFIZER INC-2015286664

PATIENT
  Age: 11 Month

DRUGS (4)
  1. GENTAMICIN. [Concomitant]
     Active Substance: GENTAMICIN
     Indication: SEPSIS
     Dosage: 2-5 MG , 2X/DAY
     Route: 042
  2. NEOMYCIN SULFATE. [Suspect]
     Active Substance: NEOMYCIN SULFATE
     Indication: ERYTHEMA
     Dosage: UNK UNK, 4X/DAY
     Route: 061
  3. BACITRACIN. [Suspect]
     Active Substance: BACITRACIN
     Indication: ERYTHEMA
     Dosage: UNK, 4X/DAY
     Route: 061
  4. POLYMYXIN B. [Suspect]
     Active Substance: POLYMYXIN B
     Indication: ERYTHEMA
     Dosage: UNK, 4X/DAY
     Route: 061

REACTIONS (1)
  - Deafness [Unknown]
